FAERS Safety Report 6972555-4 (Version None)
Quarter: 2010Q3

REPORT INFORMATION
  Report Type: 
  Country: None (occurrence: None)
  Receive Date: 20100909
  Receipt Date: 20100907
  Transmission Date: 20110219
  Serious: Yes (Death, Hospitalization)
  Sender: FDA-Public Use
  Company Number: JP-BAYER-200914192BYL

PATIENT
  Age: 77 Year
  Sex: Male
  Weight: 55 kg

DRUGS (11)
  1. NEXAVAR [Suspect]
     Indication: HEPATIC NEOPLASM MALIGNANT
     Dosage: TOTAL DAILY DOSE: 800 MG  UNIT DOSE: 200 MG
     Route: 048
     Dates: start: 20090616, end: 20090706
  2. LOXONIN [Concomitant]
     Dosage: UNIT DOSE: 60 MG
     Route: 048
  3. SELBEX [Concomitant]
     Dosage: AS USED: 50 MG
     Route: 048
  4. URSO 250 [Concomitant]
     Dosage: UNIT DOSE: 100 MG
     Route: 048
  5. GLYCYRON [Concomitant]
     Dosage: SINCE BEFORE ADMINISTRATION
     Route: 048
  6. LIVACT [Concomitant]
     Dosage: UNIT DOSE: 4.15 G
     Route: 048
  7. GLAKAY [Concomitant]
     Dosage: UNIT DOSE: 15 MG
     Route: 048
  8. ASPARA POTASSIUM [Concomitant]
     Dosage: UNIT DOSE: 300 MG
     Route: 048
  9. AMLODIPINE BESYLATE [Concomitant]
     Dosage: SINCE BEFORE ADMINISTRATION
     Route: 048
  10. LASIX [Concomitant]
     Dosage: TOTAL DAILY DOSE: 20 MG  UNIT DOSE: 20 MG
     Route: 048
     Dates: start: 20090722, end: 20090908
  11. ALDACTONE [Concomitant]
     Dosage: TOTAL DAILY DOSE: 50 MG  UNIT DOSE: 25 MG
     Route: 048
     Dates: start: 20090722, end: 20090908

REACTIONS (3)
  - HEPATIC FUNCTION ABNORMAL [None]
  - HEPATORENAL FAILURE [None]
  - RASH [None]
